FAERS Safety Report 17820699 (Version 1)
Quarter: 2020Q2

REPORT INFORMATION
  Report Type: Spontaneous
  Country: CZ (occurrence: US)
  Receive Date: 20200525
  Receipt Date: 20200525
  Transmission Date: 20200714
  Serious: Yes (Other)
  Sender: FDA-Public Use
  Company Number: NVSC2019US047213

PATIENT

DRUGS (16)
  1. SUNITINIB [Suspect]
     Active Substance: SUNITINIB
     Indication: SARCOMA METASTATIC
     Dosage: UNK
     Route: 065
  2. ETOPOSIDE. [Suspect]
     Active Substance: ETOPOSIDE
     Indication: SARCOMA METASTATIC
     Dosage: 25 MG/M2, QD
     Route: 048
  3. TEMOZOLOMIDE. [Suspect]
     Active Substance: TEMOZOLOMIDE
     Indication: SARCOMA METASTATIC
     Dosage: 30 MG/M2, QD
     Route: 048
  4. VINCRISTINE [Suspect]
     Active Substance: VINCRISTINE
     Indication: SARCOMA METASTATIC
     Dosage: 1.5 MG/M2, QD
     Route: 065
  5. VALPROATE [Suspect]
     Active Substance: VALPROIC ACID
     Indication: SARCOMA METASTATIC
     Dosage: UNK
     Route: 065
  6. BEVACIZUMAB. [Suspect]
     Active Substance: BEVACIZUMAB
     Indication: SARCOMA METASTATIC
     Dosage: 10 MG/KG, QD
     Route: 065
  7. METFORMIN [Suspect]
     Active Substance: METFORMIN HYDROCHLORIDE
     Indication: SARCOMA METASTATIC
     Dosage: UNK
     Route: 065
     Dates: start: 201412, end: 201505
  8. PAZOPANIB [Suspect]
     Active Substance: PAZOPANIB
     Indication: SARCOMA METASTATIC
     Dosage: UNK
     Route: 065
     Dates: start: 201412, end: 201505
  9. ERGOCALCIFEROL. [Suspect]
     Active Substance: ERGOCALCIFEROL
     Indication: SARCOMA METASTATIC
     Dosage: 1500 UNK, QD (U/M2)
     Route: 065
  10. IRINOTECAN [Suspect]
     Active Substance: IRINOTECAN
     Indication: SARCOMA METASTATIC
     Dosage: 50 MG/M2, QD
     Route: 065
  11. IFOSFAMIDE. [Suspect]
     Active Substance: IFOSFAMIDE
     Indication: SARCOMA METASTATIC
     Dosage: 1800 MG/M2, QD
     Route: 065
  12. CELECOXIB. [Suspect]
     Active Substance: CELECOXIB
     Indication: SARCOMA METASTATIC
     Dosage: 400 MG/M2, QD
     Route: 048
  13. LIPANTHYL [Suspect]
     Active Substance: FENOFIBRATE
     Indication: SARCOMA METASTATIC
     Dosage: 100 MG/M2, QD
     Route: 048
  14. CYCLOPHOSPHAMIDE. [Suspect]
     Active Substance: CYCLOPHOSPHAMIDE
     Indication: SARCOMA METASTATIC
     Dosage: 1200 MG/M2, QD
     Route: 065
  15. 13-CIS-RETINOIC ACID [Suspect]
     Active Substance: ISOTRETINOIN
     Indication: SARCOMA METASTATIC
     Dosage: 100 MG/M2, QD
     Route: 065
  16. DOXORUBICIN [Suspect]
     Active Substance: DOXORUBICIN
     Indication: SARCOMA METASTATIC
     Dosage: 37.5 MG/M2, QD
     Route: 065

REACTIONS (4)
  - Metastasis [Unknown]
  - Malignant neoplasm progression [Unknown]
  - Sarcoma metastatic [Unknown]
  - Product use in unapproved indication [Unknown]
